FAERS Safety Report 9649134 (Version 1)
Quarter: 2013Q4

REPORT INFORMATION
  Report Type: Spontaneous
  Country: US (occurrence: US)
  Receive Date: 20131028
  Receipt Date: 20131028
  Transmission Date: 20140711
  Serious: Yes (Hospitalization)
  Sender: FDA-Public Use
  Company Number: -SAAVPROD-POMP-1003102

PATIENT
  Sex: Female

DRUGS (3)
  1. ALGLUCOSIDASE ALFA [Suspect]
     Indication: GLYCOGEN STORAGE DISEASE TYPE II
     Dosage: UNK UNK, Q2W
     Route: 042
  2. LORATADINE [Concomitant]
     Indication: PREMEDICATION
     Route: 065
  3. PARACETAMOL [Concomitant]
     Indication: PREMEDICATION
     Route: 065

REACTIONS (1)
  - Pneumonia [Unknown]
